FAERS Safety Report 19691356 (Version 2)
Quarter: 2021Q3

REPORT INFORMATION
  Report Type: Spontaneous
  Country: ES (occurrence: ES)
  Receive Date: 20210812
  Receipt Date: 20210921
  Transmission Date: 20211014
  Serious: Yes (Other)
  Sender: FDA-Public Use
  Company Number: ES-LUPIN PHARMACEUTICALS INC.-2021-14456

PATIENT
  Age: 75 Year
  Sex: Male

DRUGS (3)
  1. PERAMPANEL [Interacting]
     Active Substance: PERAMPANEL
     Dosage: 4 MILLIGRAM, QD
     Route: 065
  2. LORAZEPAM. [Suspect]
     Active Substance: LORAZEPAM
     Indication: ORTHOSTATIC TREMOR
     Dosage: UNK
     Route: 065
  3. PERAMPANEL [Interacting]
     Active Substance: PERAMPANEL
     Indication: ORTHOSTATIC TREMOR
     Dosage: 2 MILLIGRAM, QD
     Route: 065

REACTIONS (4)
  - Off label use [Unknown]
  - Depression [Unknown]
  - Drug interaction [Unknown]
  - Drug tolerance decreased [Unknown]
